FAERS Safety Report 5796378-7 (Version None)
Quarter: 2008Q3

REPORT INFORMATION
  Report Type: 
  Country: None (occurrence: None)
  Receive Date: 20080701
  Receipt Date: 20080626
  Transmission Date: 20090109
  Serious: Yes (Life-Threatening, Hospitalization, Other)
  Sender: FDA-Public Use
  Company Number: GR-ABBOTT-08P-066-0458932-00

PATIENT
  Age: 72 Year
  Sex: Male
  Weight: 68 kg

DRUGS (7)
  1. HUMIRA [Suspect]
     Indication: RHEUMATOID ARTHRITIS
     Route: 058
     Dates: start: 20080221, end: 20080606
  2. METOPROLOL TARTRATE [Concomitant]
     Indication: DRUG USE FOR UNKNOWN INDICATION
     Route: 048
     Dates: start: 20080305
  3. PANTOPRAZOLE SODIUM [Concomitant]
     Indication: DRUG USE FOR UNKNOWN INDICATION
     Dosage: 1X1 (TOTAL DAILY DOSE)
     Route: 048
     Dates: start: 20080320
  4. ACENOCOUMAROL [Concomitant]
     Indication: DRUG USE FOR UNKNOWN INDICATION
     Dosage: 1/2X1 (TOTAL DAILY DOSE)
     Route: 048
     Dates: start: 20080411
  5. METHYLPREDNISOLONE [Concomitant]
     Indication: DRUG USE FOR UNKNOWN INDICATION
     Route: 048
     Dates: start: 20080425
  6. CALCITONIN SALMON [Concomitant]
     Indication: DRUG USE FOR UNKNOWN INDICATION
     Dosage: 1X1 (TOTAL DAILY DOSE)
     Dates: start: 20080514
  7. LEKOVIT CA [Concomitant]
     Indication: DRUG USE FOR UNKNOWN INDICATION
     Dosage: 1X1 (DOSAGE FORM)
     Route: 048
     Dates: start: 20080606

REACTIONS (5)
  - ANAPHYLACTIC REACTION [None]
  - ARTHRALGIA [None]
  - HYPOTENSION [None]
  - PYREXIA [None]
  - RASH GENERALISED [None]
